FAERS Safety Report 7540798-7 (Version None)
Quarter: 2011Q2

REPORT INFORMATION
  Report Type: 
  Country: None (occurrence: None)
  Receive Date: 20110603
  Receipt Date: 20110525
  Transmission Date: 20111010
  Serious: Yes (Other)
  Sender: FDA-Public Use
  Company Number: 2011SP024197

PATIENT
  Sex: Female

DRUGS (3)
  1. SEROQUEL [Suspect]
     Indication: DEPRESSION
     Dosage: 25 MG;QD;PO
     Route: 048
     Dates: start: 20100830, end: 20101021
  2. MIRTAZAPINE [Suspect]
     Indication: DEPRESSION
     Dosage: 3.75 MG;BID;PO
     Route: 048
     Dates: start: 20100506, end: 20100830
  3. CYMBALTA [Suspect]
     Indication: DEPRESSION
     Dosage: 30 MG;BID;PO
     Route: 048
     Dates: start: 20100115, end: 20101021

REACTIONS (2)
  - GESTATIONAL DIABETES [None]
  - DRUG EXPOSURE DURING PREGNANCY [None]
